FAERS Safety Report 4981576-2 (Version None)
Quarter: 2006Q2

REPORT INFORMATION
  Report Type: 
  Country: None (occurrence: None)
  Receive Date: 20060420
  Receipt Date: 20060420
  Transmission Date: 20061013
  Serious: Yes (Life-Threatening, Hospitalization, Other)
  Sender: FDA-Public Use
  Company Number: None

PATIENT
  Age: 38 Year
  Sex: Male
  Weight: 108.8633 kg

DRUGS (1)
  1. PAXIL [Suspect]

REACTIONS (135)
  - ABNORMAL DREAMS [None]
  - ACTIVITIES OF DAILY LIVING IMPAIRED [None]
  - AFFECT LABILITY [None]
  - AKINESIA [None]
  - ALCOHOLISM [None]
  - AMNESIA [None]
  - ANAEMIA [None]
  - ANGER [None]
  - ANOREXIA [None]
  - ARTHRALGIA [None]
  - ARTHRITIS [None]
  - ASTHENIA [None]
  - ATRIAL HYPERTROPHY [None]
  - BACTERIAL INFECTION [None]
  - BRADYCARDIA [None]
  - BRUXISM [None]
  - CARDIAC DISORDER [None]
  - CENTRAL NERVOUS SYSTEM STIMULATION [None]
  - CEREBRAL DISORDER [None]
  - CHILLS [None]
  - CHRONIC FATIGUE SYNDROME [None]
  - CONDUCTION DISORDER [None]
  - CONSTIPATION [None]
  - CONTUSION [None]
  - CONVULSION [None]
  - COORDINATION ABNORMAL [None]
  - COUGH [None]
  - CRYING [None]
  - DECREASED APPETITE [None]
  - DEPERSONALISATION [None]
  - DEPRESSED LEVEL OF CONSCIOUSNESS [None]
  - DEPRESSION [None]
  - DIARRHOEA [None]
  - DIFFICULTY IN WALKING [None]
  - DILATATION ATRIAL [None]
  - DISCOMFORT [None]
  - DISTURBANCE IN ATTENTION [None]
  - DIZZINESS [None]
  - DRY MOUTH [None]
  - DRY SKIN [None]
  - DYSARTHRIA [None]
  - DYSGEUSIA [None]
  - DYSPEPSIA [None]
  - DYSPHAGIA [None]
  - DYSURIA [None]
  - EAR DISORDER [None]
  - EAR PAIN [None]
  - ECCHYMOSIS [None]
  - ECZEMA [None]
  - EDUCATIONAL PROBLEM [None]
  - EJACULATION DISORDER [None]
  - ELECTROCARDIOGRAM ABNORMAL [None]
  - EMOTIONAL DISORDER [None]
  - ERECTILE DYSFUNCTION [None]
  - ERUCTATION [None]
  - EYE PAIN [None]
  - FIBROMYALGIA [None]
  - FLATULENCE [None]
  - FRACTURE [None]
  - FURUNCLE [None]
  - GASTRITIS [None]
  - GASTROENTERITIS [None]
  - GASTROENTERITIS VIRAL [None]
  - GASTROINTESTINAL INFLAMMATION [None]
  - HALLUCINATION [None]
  - HEADACHE [None]
  - HOT FLUSH [None]
  - HYPERHIDROSIS [None]
  - HYPERKINESIA [None]
  - HYPERTENSION [None]
  - HYPERTONIA [None]
  - HYPERVENTILATION [None]
  - HYPOAESTHESIA [None]
  - HYPOMANIA [None]
  - ILL-DEFINED DISORDER [None]
  - INFLAMMATION [None]
  - INFLUENZA [None]
  - INSOMNIA [None]
  - IRRITABILITY [None]
  - LYMPHADENOPATHY [None]
  - MALAISE [None]
  - MANIA [None]
  - MEMORY IMPAIRMENT [None]
  - MICTURITION URGENCY [None]
  - MOOD SWINGS [None]
  - MOUTH ULCERATION [None]
  - MUCOSAL INFLAMMATION [None]
  - MUSCLE DISORDER [None]
  - MUSCLE SPASMS [None]
  - NASAL DISORDER [None]
  - NAUSEA [None]
  - NECK PAIN [None]
  - NERVOUSNESS [None]
  - NOCTURIA [None]
  - OESOPHAGITIS [None]
  - ORTHOSTATIC HYPOTENSION [None]
  - OTITIS MEDIA [None]
  - OVERDOSE [None]
  - PAIN [None]
  - PANIC ATTACK [None]
  - PARAESTHESIA [None]
  - PARALYSIS [None]
  - PARANOIA [None]
  - PNEUMONIA [None]
  - POLYURIA [None]
  - PRURITUS [None]
  - PURPURA [None]
  - RECTAL HAEMORRHAGE [None]
  - RHINITIS [None]
  - SCAB [None]
  - SEDATION [None]
  - SENSORY DISTURBANCE [None]
  - SEXUAL DYSFUNCTION [None]
  - SINUSITIS [None]
  - SKIN DISORDER [None]
  - SKIN EXFOLIATION [None]
  - SKIN INFLAMMATION [None]
  - SKIN IRRITATION [None]
  - SKIN LESION [None]
  - SOMNOLENCE [None]
  - SPEECH DISORDER [None]
  - STOMACH DISCOMFORT [None]
  - SUICIDAL IDEATION [None]
  - SUICIDE ATTEMPT [None]
  - SYNCOPE [None]
  - TACHYCARDIA [None]
  - THINKING ABNORMAL [None]
  - TINNITUS [None]
  - UNEVALUABLE EVENT [None]
  - URINARY INCONTINENCE [None]
  - URINARY RETENTION [None]
  - URINARY TRACT INFECTION [None]
  - VERTIGO [None]
  - VISION BLURRED [None]
  - VOMITING [None]
